FAERS Safety Report 5104734-5 (Version None)
Quarter: 2006Q3

REPORT INFORMATION
  Report Type: 
  Country: None (occurrence: None)
  Receive Date: 20060914
  Receipt Date: 20060906
  Transmission Date: 20061208
  Serious: Yes (Other)
  Sender: FDA-Public Use
  Company Number: CA-JNJFOC-20060705469

PATIENT
  Sex: Male
  Weight: 108 kg

DRUGS (5)
  1. REMICADE [Suspect]
     Dosage: HAS HAD FOUR INFUSIONS
     Route: 042
  2. REMICADE [Suspect]
     Dosage: HAS HAD FOUR INFUSIONS
     Route: 042
  3. REMICADE [Suspect]
     Dosage: HAS HAD FOUR INFUSIONS
     Route: 042
  4. REMICADE [Suspect]
     Dosage: HAS HAD FOUR INFUSIONS
     Route: 042
  5. REMICADE [Suspect]
     Indication: ANKYLOSING SPONDYLITIS
     Dosage: HAS HAD FOUR INFUSIONS
     Route: 042

REACTIONS (5)
  - DIARRHOEA [None]
  - HEADACHE [None]
  - HYPOAESTHESIA [None]
  - NAUSEA [None]
  - VOMITING [None]
